FAERS Safety Report 11059587 (Version 1)
Quarter: 2015Q2

REPORT INFORMATION
  Report Type: Spontaneous
  Country: SE (occurrence: SE)
  Receive Date: 20150423
  Receipt Date: 20150423
  Transmission Date: 20150821
  Serious: Yes (Hospitalization)
  Sender: FDA-Public Use
  Company Number: SE-MERCK-1504SWE017264

PATIENT
  Age: 60 Year
  Sex: Male

DRUGS (4)
  1. ATARAX [Suspect]
     Active Substance: HYDROXYZINE\HYDROXYZINE HYDROCHLORIDE
     Dosage: UNK
     Route: 048
  2. LOSARTAN POTASSIUM. [Suspect]
     Active Substance: LOSARTAN POTASSIUM
     Dosage: UNK
     Route: 048
  3. METOPROLOL [Suspect]
     Active Substance: METOPROLOL
     Dosage: UNK
     Route: 048
  4. ATORVASTATIN [Suspect]
     Active Substance: ATORVASTATIN
     Dosage: UNK
     Route: 048

REACTIONS (2)
  - Suicidal ideation [Recovered/Resolved]
  - Toxicity to various agents [Recovered/Resolved]
